FAERS Safety Report 11322100 (Version 4)
Quarter: 2015Q4

REPORT INFORMATION
  Report Type: Spontaneous
  Country: US (occurrence: US)
  Receive Date: 20150729
  Receipt Date: 20151125
  Transmission Date: 20160304
  Serious: Yes (Hospitalization, Other)
  Sender: FDA-Public Use
  Company Number: US-JNJFOC-20150718896

PATIENT
  Age: 70 Year
  Sex: Male

DRUGS (4)
  1. IMBRUVICA [Suspect]
     Active Substance: IBRUTINIB
     Indication: DIFFUSE LARGE B-CELL LYMPHOMA STAGE III
     Route: 048
     Dates: start: 20140809
  2. IRON [Concomitant]
     Active Substance: IRON
  3. IMBRUVICA [Suspect]
     Active Substance: IBRUTINIB
     Indication: NON-HODGKIN^S LYMPHOMA
     Route: 048
     Dates: start: 20140809
  4. ZINC [Concomitant]
     Active Substance: ZINC\ZINC CHLORIDE

REACTIONS (7)
  - Clostridium difficile colitis [Unknown]
  - Hyperkalaemia [Recovered/Resolved]
  - Pneumonia [Unknown]
  - Orthostatic hypotension [Unknown]
  - Syncope [Recovered/Resolved]
  - Renal tubular necrosis [Unknown]
  - Renal failure [Not Recovered/Not Resolved]

NARRATIVE: CASE EVENT DATE: 2015
